FAERS Safety Report 23998948 (Version 1)
Quarter: 2024Q2

REPORT INFORMATION
  Report Type: Spontaneous
  Country: US (occurrence: US)
  Receive Date: 20240621
  Receipt Date: 20240621
  Transmission Date: 20240716
  Serious: Yes (Other)
  Sender: FDA-Public Use
  Company Number: US-STERISCIENCE B.V.-2024-ST-000196

PATIENT
  Age: 73 Year
  Sex: Male
  Weight: 80 kg

DRUGS (16)
  1. MIDAZOLAM [Suspect]
     Active Substance: MIDAZOLAM
     Indication: Anaesthesia
     Dosage: 2 MILLIGRAM
     Route: 042
  2. MIDAZOLAM [Suspect]
     Active Substance: MIDAZOLAM
     Dosage: 2 MILLIGRAM
     Route: 042
  3. MIDAZOLAM [Suspect]
     Active Substance: MIDAZOLAM
     Dosage: 2 MILLIGRAM
     Route: 042
  4. MEPIVACAINE [Concomitant]
     Active Substance: MEPIVACAINE HYDROCHLORIDE
     Indication: Spinal anaesthesia
     Dosage: 3 MILLILITER
     Route: 065
  5. FENTANYL [Concomitant]
     Active Substance: FENTANYL\FENTANYL CITRATE
     Indication: Product used for unknown indication
     Dosage: 50 MICROGRAM
     Route: 065
  6. PROPOFOL [Concomitant]
     Active Substance: PROPOFOL
     Indication: Product used for unknown indication
     Dosage: 60 MICROGRAM/KILOGRAM, QMINUTE
     Route: 065
  7. PROPOFOL [Concomitant]
     Active Substance: PROPOFOL
     Dosage: 40 MICROGRAM/KILOGRAM, QMINUTE
     Route: 065
  8. CEFAZOLIN [Concomitant]
     Active Substance: CEFAZOLIN
     Indication: Antibiotic prophylaxis
     Dosage: 2 GRAM
     Route: 065
  9. PHENYLEPHRINE [Concomitant]
     Active Substance: PHENYLEPHRINE HYDROCHLORIDE
     Indication: Product used for unknown indication
     Dosage: 160 MICROGRAM
     Route: 065
  10. PHENYLEPHRINE [Concomitant]
     Active Substance: PHENYLEPHRINE HYDROCHLORIDE
     Dosage: 100 MICROGRAM, QMINUTE, DRIP
     Route: 065
  11. EPHEDRINE [Concomitant]
     Active Substance: EPHEDRINE
     Indication: Product used for unknown indication
     Dosage: 10 MILLIGRAM
     Route: 065
  12. EPINEPHRINE [Concomitant]
     Active Substance: EPINEPHRINE
     Indication: Product used for unknown indication
     Dosage: 0.5 MILLIGRAM
     Route: 065
  13. NOREPINEPHRINE [Concomitant]
     Active Substance: NOREPINEPHRINE\NOREPINEPHRINE BITARTRATE
     Indication: Product used for unknown indication
     Dosage: 5-20 MCG/MIN
     Route: 065
  14. NOREPINEPHRINE [Concomitant]
     Active Substance: NOREPINEPHRINE\NOREPINEPHRINE BITARTRATE
     Dosage: STABILIZED, DRIP
     Route: 065
  15. LACTATED RINGERS SOLUTION [Concomitant]
     Active Substance: CALCIUM CHLORIDE\POTASSIUM CHLORIDE\SODIUM CHLORIDE\SODIUM LACTATE
     Indication: Product used for unknown indication
     Dosage: 1500 MILLILITER
     Route: 065
  16. DEXMEDETOMIDINE [Concomitant]
     Active Substance: DEXMEDETOMIDINE
     Indication: Product used for unknown indication
     Dosage: 0.7 MICROGRAM/KILOGRAM, QH
     Route: 065

REACTIONS (1)
  - Anaphylactoid reaction [Recovered/Resolved]
